FAERS Safety Report 8474099-X (Version None)
Quarter: 2012Q2

REPORT INFORMATION
  Report Type: 
  Country: None (occurrence: None)
  Receive Date: 20120628
  Receipt Date: 20110505
  Transmission Date: 20120825
  Serious: Yes (Death)
  Sender: FDA-Public Use
  Company Number: US-MYLANLABS-2011S1009474

PATIENT
  Age: 77 Year
  Sex: Male

DRUGS (8)
  1. ZANTAC [Concomitant]
  2. ATROVENT [Concomitant]
  3. RISPERIDONE [Concomitant]
  4. COMBIVENT [Concomitant]
  5. CYMBALTA [Concomitant]
  6. LISINOPRIL [Concomitant]
  7. COUMADIN [Concomitant]
  8. CLOZAPINE [Suspect]
     Indication: SCHIZOPHRENIA
     Route: 048

REACTIONS (1)
  - DEATH [None]
